FAERS Safety Report 7732221-4 (Version None)
Quarter: 2011Q3

REPORT INFORMATION
  Report Type: 
  Country: None (occurrence: None)
  Receive Date: 20110906
  Receipt Date: 20110817
  Transmission Date: 20111222
  Serious: Yes (Other)
  Sender: FDA-Public Use
  Company Number: US-AMGEN-USASP2011028535

PATIENT
  Age: 82 Year
  Sex: Female
  Weight: 63.039 kg

DRUGS (20)
  1. CITRACAL + D                       /01438101/ [Concomitant]
     Dosage: 200 MG, QD
  2. ALBUTEROL SULFATE [Concomitant]
  3. LORAZEPAM [Concomitant]
     Dosage: 0.5 MG, UNK
     Route: 048
  4. LEVOTHYROXINE SODIUM [Concomitant]
     Dosage: 25 A?G, QD
     Route: 048
  5. FLUCONAZOLE [Concomitant]
  6. SERTRALINE HYDROCHLORIDE [Concomitant]
  7. SINGULAIR [Concomitant]
     Dosage: 10 MG, QD
  8. VENTOLIN [Concomitant]
  9. ZOVIRAX                            /00587301/ [Concomitant]
  10. AVAPRO [Concomitant]
     Dosage: 75 MG, QD
  11. OMEPRAZOLE [Concomitant]
     Dosage: 40 MG, QD
  12. AZELASTINE HCL [Concomitant]
  13. EPINEPHRINE [Concomitant]
  14. FUROSEMIDE [Concomitant]
  15. PREDNISONE [Concomitant]
     Dosage: 1 MG, UNK
  16. FLOVENT [Concomitant]
  17. FLUTICASONE PROPIONATE [Concomitant]
  18. LIDOCAINE [Concomitant]
  19. MULTI-VITAMINS [Concomitant]
  20. PROLIA [Suspect]
     Indication: OSTEOPOROSIS
     Dosage: 60 MG, UNK
     Route: 058
     Dates: start: 20110324, end: 20110324

REACTIONS (6)
  - ERYTHEMA [None]
  - DIZZINESS [None]
  - PAPULE [None]
  - PRURITUS [None]
  - URINARY TRACT INFECTION [None]
  - DERMATITIS DIAPER [None]
